FAERS Safety Report 10484555 (Version 3)
Quarter: 2014Q4

REPORT INFORMATION
  Report Type: Spontaneous
  Country: US (occurrence: US)
  Receive Date: 20140930
  Receipt Date: 20141118
  Transmission Date: 20150528
  Serious: Yes (Other)
  Sender: FDA-Public Use
  Company Number: US-INCYTE CORPORATION-2014IN002727

PATIENT
  Age: 60 Year
  Sex: Male
  Weight: 87.08 kg

DRUGS (9)
  1. FAMOTIDINE. [Concomitant]
     Active Substance: FAMOTIDINE
  2. VITAMIN C [Concomitant]
     Active Substance: ASCORBIC ACID
  3. ALLOPURINOL. [Concomitant]
     Active Substance: ALLOPURINOL
  4. LEVAQUIN [Concomitant]
     Active Substance: LEVOFLOXACIN
  5. SPIRONOLACTONE. [Concomitant]
     Active Substance: SPIRONOLACTONE
  6. JAKAFI [Suspect]
     Active Substance: RUXOLITINIB
     Dosage: 5 MG, BID
     Route: 048
  7. IRON                               /03292501/ [Concomitant]
  8. JAKAFI [Suspect]
     Active Substance: RUXOLITINIB
     Dosage: 15 MG, BID
     Route: 048
     Dates: start: 20140411
  9. PREDNISONE. [Concomitant]
     Active Substance: PREDNISONE

REACTIONS (9)
  - Osteomyelitis [Recovering/Resolving]
  - Anaemia [Recovering/Resolving]
  - Swelling [Unknown]
  - Hypoaesthesia [Unknown]
  - Gout [Not Recovered/Not Resolved]
  - Gingival abscess [Recovering/Resolving]
  - Burning sensation [Unknown]
  - Neutropenia [Recovering/Resolving]
  - Disease progression [Unknown]

NARRATIVE: CASE EVENT DATE: 201408
